FAERS Safety Report 5374113-4 (Version None)
Quarter: 2007Q2

REPORT INFORMATION
  Report Type: 
  Country: None (occurrence: None)
  Receive Date: 20070627
  Receipt Date: 20070618
  Transmission Date: 20071010
  Serious: Yes (Hospitalization)
  Sender: FDA-Public Use
  Company Number: E2090-00224-CLI-DE

PATIENT
  Age: 49 Year
  Sex: Male
  Weight: 85 kg

DRUGS (16)
  1. ZONEGRAN [Suspect]
     Indication: EPILEPSY
     Dosage: SEE IMAGE
     Route: 048
     Dates: start: 20070126, end: 20070201
  2. ZONEGRAN [Suspect]
     Indication: EPILEPSY
     Dosage: SEE IMAGE
     Route: 048
     Dates: start: 20070201, end: 20070201
  3. ZONEGRAN [Suspect]
     Indication: EPILEPSY
     Dosage: SEE IMAGE
     Route: 048
     Dates: start: 20070201, end: 20070221
  4. ZONEGRAN [Suspect]
     Indication: EPILEPSY
     Dosage: SEE IMAGE
     Route: 048
     Dates: start: 20070222, end: 20070301
  5. ZONEGRAN [Suspect]
     Indication: EPILEPSY
     Dosage: SEE IMAGE
     Route: 048
     Dates: start: 20070302, end: 20070429
  6. ZONEGRAN [Suspect]
     Indication: EPILEPSY
     Dosage: SEE IMAGE
     Route: 048
     Dates: start: 20070430, end: 20070501
  7. ZONEGRAN [Suspect]
     Indication: EPILEPSY
     Dosage: SEE IMAGE
     Route: 048
     Dates: start: 20070502, end: 20070501
  8. ZONEGRAN [Suspect]
     Indication: EPILEPSY
     Dosage: SEE IMAGE
     Route: 048
     Dates: start: 20070524, end: 20070528
  9. ZONEGRAN [Suspect]
     Indication: EPILEPSY
     Dosage: SEE IMAGE
     Route: 048
     Dates: start: 20070529, end: 20070531
  10. ZONEGRAN [Suspect]
     Indication: EPILEPSY
     Dosage: SEE IMAGE
     Route: 048
     Dates: start: 20070601, end: 20070604
  11. KEPPRA [Concomitant]
  12. ERGENYL CHRONO (ERGENYL CHRONO) [Concomitant]
  13. CONGERAN [Concomitant]
  14. DIGOXIN [Concomitant]
  15. ENOXAPARIN SODIUM [Concomitant]
  16. OMEPRAZOLE [Concomitant]

REACTIONS (12)
  - ABDOMINAL PAIN UPPER [None]
  - ANOREXIA [None]
  - BACK PAIN [None]
  - BLOOD GLUCOSE INCREASED [None]
  - BREAST PAIN [None]
  - DYSPEPSIA [None]
  - MUCOSAL INFLAMMATION [None]
  - NASOPHARYNGITIS [None]
  - PAINFUL DEFAECATION [None]
  - PNEUMONIA [None]
  - VERTIGO [None]
  - WEIGHT DECREASED [None]
